FAERS Safety Report 12050835 (Version 20)
Quarter: 2019Q3

REPORT INFORMATION
  Report Type: Report from Study
  Country: CA (occurrence: CA)
  Receive Date: 20160209
  Receipt Date: 20190730
  Transmission Date: 20191004
  Serious: Yes (Hospitalization, Other)
  Sender: FDA-Public Use
  Company Number: CA-ROCHE-1292587

PATIENT
  Age: 60 Year
  Sex: Female
  Weight: 59 kg

DRUGS (6)
  1. ACTEMRA [Suspect]
     Active Substance: TOCILIZUMAB
     Route: 042
     Dates: start: 20131218
  2. ACTEMRA [Suspect]
     Active Substance: TOCILIZUMAB
     Route: 042
     Dates: start: 20131017
  3. BISOPROLOL [Concomitant]
     Active Substance: BISOPROLOL
  4. ACTEMRA [Suspect]
     Active Substance: TOCILIZUMAB
     Indication: RHEUMATOID ARTHRITIS
     Route: 042
     Dates: start: 20130722, end: 20190703
  5. ACTEMRA [Suspect]
     Active Substance: TOCILIZUMAB
     Route: 042
  6. ACTEMRA [Suspect]
     Active Substance: TOCILIZUMAB
     Route: 042
     Dates: start: 20160616

REACTIONS (20)
  - Tooth infection [Recovered/Resolved]
  - Drug ineffective [Unknown]
  - Arthralgia [Not Recovered/Not Resolved]
  - Blood pressure diastolic decreased [Unknown]
  - Infective glossitis [Unknown]
  - Peripheral swelling [Unknown]
  - Urinary tract infection [Recovering/Resolving]
  - Hypotension [Unknown]
  - Pain [Not Recovered/Not Resolved]
  - Weight increased [Unknown]
  - Ulcer [Unknown]
  - Oral infection [Unknown]
  - Joint swelling [Not Recovered/Not Resolved]
  - Blood pressure diastolic decreased [Unknown]
  - Nasopharyngitis [Unknown]
  - Wound infection [Not Recovered/Not Resolved]
  - Malaise [Unknown]
  - Heart rate decreased [Unknown]
  - Infusion related reaction [Unknown]
  - Liver function test increased [Unknown]

NARRATIVE: CASE EVENT DATE: 20131017
